FAERS Safety Report 16488742 (Version 3)
Quarter: 2019Q4

REPORT INFORMATION
  Report Type: Report from Study
  Country: US (occurrence: US)
  Receive Date: 20190627
  Receipt Date: 20191016
  Transmission Date: 20200122
  Serious: Yes (Hospitalization)
  Sender: FDA-Public Use
  Company Number: US-ACTELION-A-US2018-168396

PATIENT
  Age: 62 Year
  Sex: Male
  Weight: 108.84 kg

DRUGS (19)
  1. ADCIRCA [Concomitant]
     Active Substance: TADALAFIL
  2. POTASSIUM CHLORIDE. [Concomitant]
     Active Substance: POTASSIUM CHLORIDE
  3. BUSPIRON [Concomitant]
  4. ESOMEPRAZOLE. [Concomitant]
     Active Substance: ESOMEPRAZOLE MAGNESIUM
  5. VITAMIN B COMPLEX [Concomitant]
     Active Substance: CYANOCOBALAMIN\DEXPANTHENOL\NIACINAMIDE\PYRIDOXINE HYDROCHLORIDE\RIBOFLAVIN 5^-PHOSPHATE SODIUM\THIAMINE HYDROCHLORIDE\VITAMIN B COMPLEX
  6. METOPROLOL. [Concomitant]
     Active Substance: METOPROLOL
  7. MYCOPHENOLATE [Concomitant]
     Active Substance: MYCOPHENOLIC ACID
  8. FUROSEMIDE. [Concomitant]
     Active Substance: FUROSEMIDE
  9. OXYGEN. [Concomitant]
     Active Substance: OXYGEN
  10. UPTRAVI [Suspect]
     Active Substance: SELEXIPAG
     Indication: PULMONARY HYPERTENSION
     Dosage: 1600 MCG, BID
     Route: 048
     Dates: start: 20180425
  11. OPSUMIT [Suspect]
     Active Substance: MACITENTAN
     Indication: PULMONARY ARTERIAL HYPERTENSION
     Dosage: 10 MG, QD
     Route: 048
     Dates: start: 20190202
  12. ALLOPURINOL. [Concomitant]
     Active Substance: ALLOPURINOL
  13. ATORVASTATIN [Concomitant]
     Active Substance: ATORVASTATIN
  14. LEVETIRACETAM. [Concomitant]
     Active Substance: LEVETIRACETAM
  15. MAGNESIUM OXIDE. [Concomitant]
     Active Substance: MAGNESIUM OXIDE
  16. METFORMIN [Concomitant]
     Active Substance: METFORMIN HYDROCHLORIDE
  17. UPTRAVI [Suspect]
     Active Substance: SELEXIPAG
     Dosage: 200 MCG, BID
     Route: 048
     Dates: start: 20180216
  18. ASPIRIN. [Concomitant]
     Active Substance: ASPIRIN
  19. MULTIVITAMIN [Concomitant]
     Active Substance: VITAMINS

REACTIONS (15)
  - Hyponatraemia [Unknown]
  - Influenza [Not Recovered/Not Resolved]
  - Fatigue [Unknown]
  - Hyperkalaemia [Unknown]
  - Walking disability [Unknown]
  - Agitation [Unknown]
  - Nausea [Unknown]
  - Bronchiolitis [Recovered/Resolved]
  - Anxiety [Unknown]
  - Malaise [Unknown]
  - Atrial fibrillation [Unknown]
  - Head injury [Unknown]
  - Acidosis [Unknown]
  - Fall [Unknown]
  - Flushing [Unknown]

NARRATIVE: CASE EVENT DATE: 20190219
